FAERS Safety Report 14482844 (Version 1)
Quarter: 2018Q1

REPORT INFORMATION
  Report Type: Report from Study
  Country: US (occurrence: US)
  Receive Date: 20180203
  Receipt Date: 20180203
  Transmission Date: 20180509
  Serious: Yes (Hospitalization, Other)
  Sender: FDA-Public Use
  Company Number: US-TORRENT-00005702

PATIENT
  Age: 73 Year
  Sex: Female

DRUGS (2)
  1. DIAZEPAM. [Suspect]
     Active Substance: DIAZEPAM
     Indication: PRODUCT USED FOR UNKNOWN INDICATION
     Dosage: 5 MG BY MOUTH TWICE?A DAY
     Route: 048
  2. BUPROPION. [Suspect]
     Active Substance: BUPROPION
     Indication: PRODUCT USED FOR UNKNOWN INDICATION
     Dosage: 100 MG BY MOUTH TWICE A DAY
     Route: 048

REACTIONS (7)
  - Parkinson^s disease [Unknown]
  - Mental disorder [Unknown]
  - Hallucination [Unknown]
  - Failure to thrive [Unknown]
  - Withdrawal syndrome [Unknown]
  - Delirium [Unknown]
  - Dementia [Unknown]
